FAERS Safety Report 7690712-9 (Version None)
Quarter: 2011Q3

REPORT INFORMATION
  Report Type: 
  Country: None (occurrence: None)
  Receive Date: 20110812
  Receipt Date: 20110807
  Transmission Date: 20111222
  Serious: Yes (Other)
  Sender: FDA-Public Use
  Company Number: CIO11010222

PATIENT
  Age: 16 Year
  Sex: Female
  Weight: 7236 kg

DRUGS (3)
  1. GUAIFENESIN AND DEXTROMETHORPHAN HBR [Suspect]
     Indication: INCREASED UPPER AIRWAY SECRETION
     Dosage: 30 ML, 1 ONLY, ORAL
     Route: 048
     Dates: start: 20110509, end: 20110509
  2. DEPAKOTE ER [Concomitant]
  3. RISPERDAL [Concomitant]

REACTIONS (4)
  - ANAPHYLACTIC REACTION [None]
  - DYSPNOEA [None]
  - SWOLLEN TONGUE [None]
  - ANAPHYLACTIC SHOCK [None]
